FAERS Safety Report 17153889 (Version 2)
Quarter: 2019Q4

REPORT INFORMATION
  Report Type: Spontaneous
  Country: US (occurrence: US)
  Receive Date: 20191213
  Receipt Date: 20191227
  Transmission Date: 20200122
  Serious: Yes (Hospitalization)
  Sender: FDA-Public Use
  Company Number: US-ELI_LILLY_AND_COMPANY-US201912003012

PATIENT
  Age: 58 Year
  Sex: Female

DRUGS (1)
  1. EMGALITY [Suspect]
     Active Substance: GALCANEZUMAB-GNLM
     Indication: MIGRAINE
     Dosage: 1 DOSAGE FORM, UNKNOWN
     Route: 058
     Dates: start: 201906, end: 20191111

REACTIONS (11)
  - Bacterial infection [Unknown]
  - White blood cell count increased [Unknown]
  - Malaise [Unknown]
  - Bronchial hyperreactivity [Recovering/Resolving]
  - Oesophageal oedema [Unknown]
  - Vocal cord thickening [Unknown]
  - Oesophageal candidiasis [Recovering/Resolving]
  - Chest discomfort [Unknown]
  - Bronchospasm [Unknown]
  - Tremor [Unknown]
  - Dizziness postural [Unknown]
